FAERS Safety Report 4792073-1 (Version None)
Quarter: 2005Q4

REPORT INFORMATION
  Report Type: 
  Country: None (occurrence: None)
  Receive Date: 20051007
  Receipt Date: 20050926
  Transmission Date: 20060501
  Serious: Yes (Hospitalization)
  Sender: FDA-Public Use
  Company Number: IL-MERCK-0509ISR00017

PATIENT
  Sex: Male

DRUGS (5)
  1. VIOXX [Suspect]
     Indication: PAIN IN EXTREMITY
     Route: 048
     Dates: start: 20000210, end: 20010511
  2. VIOXX [Suspect]
     Route: 048
     Dates: start: 20010101
  3. ETODOLAC [Concomitant]
     Indication: PAIN IN EXTREMITY
     Route: 048
     Dates: start: 20010511
  4. NUTRITIONAL SUPPLEMENTS [Concomitant]
     Route: 065
     Dates: start: 20010511
  5. CELECOXIB [Suspect]
     Indication: PAIN IN EXTREMITY
     Route: 065

REACTIONS (4)
  - CARDIAC DISORDER [None]
  - CHEST PAIN [None]
  - MYOCARDIAL INFARCTION [None]
  - PAIN IN EXTREMITY [None]
